FAERS Safety Report 8624368 (Version 2)
Quarter: 2012Q4

REPORT INFORMATION
  Report Type: 
  Country: US (occurrence: US)
  Receive Date: 20120620
  Receipt Date: 20121205
  Transmission Date: 20130627
  Serious: Yes (Other)
  Sender: FDA-Public Use
  Company Number: US-ROCHE-774681

PATIENT
  Sex: Male
  Weight: 68.1 kg

DRUGS (3)
  1. ACCUTANE [Suspect]
     Indication: ACNE CYSTIC
     Dosage: alternating dose of 40 mg and 60 mg
     Route: 065
     Dates: start: 20021226, end: 200305
  2. ACCUTANE [Suspect]
     Route: 065
  3. AMNESTEEM [Suspect]
     Indication: PRODUCT USED FOR UNKNOWN INDICATION
     Route: 065
     Dates: start: 2002, end: 2003

REACTIONS (6)
  - Inflammatory bowel disease [Unknown]
  - Crohn^s disease [Unknown]
  - Eosinophilic oesophagitis [Unknown]
  - Irritable bowel syndrome [Unknown]
  - Anxiety [Unknown]
  - Dry skin [Unknown]
